FAERS Safety Report 23757396 (Version 1)
Quarter: 2024Q2

REPORT INFORMATION
  Report Type: Report from Study
  Country: CA (occurrence: CA)
  Receive Date: 20240418
  Receipt Date: 20240418
  Transmission Date: 20240716
  Serious: Yes (Other)
  Sender: FDA-Public Use
  Company Number: CA-002147023-NVSC2023CA046361

PATIENT
  Age: 59 Year
  Sex: Female

DRUGS (4)
  1. KISQALI [Suspect]
     Active Substance: RIBOCICLIB
     Indication: Breast cancer metastatic
     Dosage: 600 MG (21 DAYS ON, 7 DAYS OFF)
     Route: 048
     Dates: start: 20230217
  2. KISQALI [Suspect]
     Active Substance: RIBOCICLIB
     Dosage: 200 MG, QD
     Route: 048
     Dates: end: 202306
  3. KISQALI [Suspect]
     Active Substance: RIBOCICLIB
     Dosage: UNK (REDUCED DOSE)
     Route: 065
  4. LETROZOLE [Suspect]
     Active Substance: LETROZOLE
     Indication: Product used for unknown indication
     Dosage: 2.5 MG, QD
     Route: 065

REACTIONS (11)
  - Hepatotoxicity [Unknown]
  - Liver injury [Unknown]
  - Sneezing [Unknown]
  - Malaise [Unknown]
  - Cough [Unknown]
  - Hypertransaminasaemia [Unknown]
  - Rhinorrhoea [Unknown]
  - Nasal congestion [Unknown]
  - Depressed mood [Unknown]
  - Weight increased [Unknown]
  - Apathy [Unknown]
